FAERS Safety Report 19581279 (Version 5)
Quarter: 2024Q1

REPORT INFORMATION
  Report Type: Report from Study
  Country: IN (occurrence: IN)
  Receive Date: 20210719
  Receipt Date: 20240312
  Transmission Date: 20240409
  Serious: Yes (Hospitalization, Other)
  Sender: FDA-Public Use
  Company Number: IN-002147023-NVSC2020IN090429

PATIENT

DRUGS (3)
  1. RUXOLITINIB [Suspect]
     Active Substance: RUXOLITINIB
     Indication: Primary myelofibrosis
     Dosage: 20 MG, BID
     Route: 048
     Dates: start: 20190729
  2. RUXOLITINIB [Suspect]
     Active Substance: RUXOLITINIB
     Dosage: 20 MG, BID
     Route: 048
     Dates: start: 20240124
  3. RUXOLITINIB [Suspect]
     Active Substance: RUXOLITINIB
     Dosage: 20 MG, BID
     Route: 051
     Dates: start: 20190929

REACTIONS (25)
  - Basophil count abnormal [Unknown]
  - Pulmonary oedema [Recovered/Resolved]
  - Eosinophil count abnormal [Unknown]
  - Asthenia [Unknown]
  - Haematocrit abnormal [Unknown]
  - Haemoglobin abnormal [Unknown]
  - Renal function test abnormal [Unknown]
  - Liver function test abnormal [Unknown]
  - Pneumonia [Unknown]
  - Lymphocyte count abnormal [Unknown]
  - Mean cell haemoglobin [Unknown]
  - Mean cell haemoglobin concentration [Unknown]
  - Mean platelet volume abnormal [Unknown]
  - Product dose omission issue [Unknown]
  - Monocyte count abnormal [Unknown]
  - Neutrophil count abnormal [Unknown]
  - Platelet count abnormal [Unknown]
  - Disease progression [Unknown]
  - Red cell distribution width [Unknown]
  - Red cell distribution width abnormal [Unknown]
  - Investigation abnormal [Unknown]
  - Splenomegaly [Unknown]
  - Red blood cell count abnormal [Unknown]
  - Tuberculosis [Unknown]
  - White blood cell count abnormal [Unknown]

NARRATIVE: CASE EVENT DATE: 20190901
